FAERS Safety Report 24916929 (Version 15)
Quarter: 2025Q2

REPORT INFORMATION
  Report Type: Spontaneous
  Country: US (occurrence: US)
  Receive Date: 20250203
  Receipt Date: 20250616
  Transmission Date: 20250716
  Serious: Yes (Other)
  Sender: PFIZER
  Company Number: US-PFIZER INC-PV202500011446

PATIENT
  Age: 99 Year
  Sex: Female
  Weight: 58.06 kg

DRUGS (2)
  1. ESTRING [Suspect]
     Active Substance: ESTRADIOL
     Indication: Urinary tract infection
     Dates: start: 202410
  2. KEFLEX [Concomitant]
     Active Substance: CEPHALEXIN
     Indication: Urinary tract infection
     Dates: start: 20250526, end: 20250530

REACTIONS (7)
  - Post-traumatic neck syndrome [Unknown]
  - Neck injury [Unknown]
  - Off label use [Unknown]
  - Drug ineffective for unapproved indication [Unknown]
  - Drug effective for unapproved indication [Unknown]
  - Cardiac disorder [Unknown]
  - Malaise [Unknown]

NARRATIVE: CASE EVENT DATE: 20241001
